FAERS Safety Report 13391711 (Version 1)
Quarter: 2017Q1

REPORT INFORMATION
  Report Type: Spontaneous
  Country: US (occurrence: US)
  Receive Date: 20170331
  Receipt Date: 20170331
  Transmission Date: 20170429
  Serious: Yes (Hospitalization, Other)
  Sender: FDA-Public Use
  Company Number: US-SAOL THERAPEUTICS-2017SAO00583

PATIENT
  Sex: Male

DRUGS (1)
  1. LIORESAL [Suspect]
     Active Substance: BACLOFEN
     Indication: MUSCLE SPASTICITY
     Dosage: 55 ?G, \DAY
     Route: 037
     Dates: start: 20170208, end: 20170322

REACTIONS (2)
  - Pseudomonas infection [Recovered/Resolved]
  - Wound dehiscence [Recovered/Resolved]
